FAERS Safety Report 7792068-X (Version None)
Quarter: 2011Q3

REPORT INFORMATION
  Report Type: 
  Country: None (occurrence: None)
  Receive Date: 20110930
  Receipt Date: 20110930
  Transmission Date: 20111222
  Serious: Yes (Other)
  Sender: FDA-Public Use
  Company Number: None

PATIENT
  Sex: Female
  Weight: 117.9352 kg

DRUGS (1)
  1. SYNTHROID [Suspect]
     Indication: THYROID DISORDER
     Dosage: 0.088 MCG DAILY 1

REACTIONS (3)
  - HEART RATE INCREASED [None]
  - PRODUCT QUALITY ISSUE [None]
  - HEART RATE IRREGULAR [None]
